FAERS Safety Report 6670700-1 (Version None)
Quarter: 2010Q2

REPORT INFORMATION
  Report Type: 
  Country: None (occurrence: None)
  Receive Date: 20100407
  Receipt Date: 20100401
  Transmission Date: 20101027
  Serious: Yes (Life-Threatening, Hospitalization)
  Sender: FDA-Public Use
  Company Number: JP-NOVOPROD-304628

PATIENT
  Age: 62 Year
  Sex: Male
  Weight: 61 kg

DRUGS (2)
  1. NOVORAPID CHU FLEXPEN [Suspect]
     Indication: TYPE 2 DIABETES MELLITUS
     Dosage: 8 IU, QD
     Route: 058
     Dates: start: 20100216
  2. NOVOLIN R [Suspect]
     Indication: TYPE 2 DIABETES MELLITUS
     Dosage: 2 IU, QD
     Route: 058
     Dates: start: 20100303, end: 20100303

REACTIONS (3)
  - DYSPHONIA [None]
  - INJECTION SITE ERYTHEMA [None]
  - URTICARIA [None]
